FAERS Safety Report 9721564 (Version 1)
Quarter: 2013Q4

REPORT INFORMATION
  Report Type: Report from Study
  Country: NZ (occurrence: NZ)
  Receive Date: 20131130
  Receipt Date: 20131130
  Transmission Date: 20140711
  Serious: Yes (Other)
  Sender: FDA-Public Use
  Company Number: PHHY2013NZ138251

PATIENT
  Sex: Male

DRUGS (1)
  1. CLOZARIL [Suspect]
     Dosage: 375 MG, NOCTE
     Dates: start: 20000719, end: 20130815

REACTIONS (1)
  - Feeling abnormal [Not Recovered/Not Resolved]
